FAERS Safety Report 6253189-6 (Version None)
Quarter: 2009Q3

REPORT INFORMATION
  Report Type: 
  Country: None (occurrence: None)
  Receive Date: 20090701
  Receipt Date: 20090625
  Transmission Date: 20100115
  Serious: Yes (Hospitalization, Other)
  Sender: FDA-Public Use
  Company Number: US-MERCK-0804USA03821

PATIENT
  Age: 60 Year
  Sex: Male
  Weight: 102 kg

DRUGS (1)
  1. JANUVIA [Suspect]
     Route: 048
     Dates: end: 20080101

REACTIONS (1)
  - PANCREATITIS [None]
